FAERS Safety Report 7519790-4 (Version None)
Quarter: 2011Q2

REPORT INFORMATION
  Report Type: 
  Country: None (occurrence: None)
  Receive Date: 20110602
  Receipt Date: 20110531
  Transmission Date: 20111010
  Serious: No
  Sender: FDA-Public Use
  Company Number: US-PFIZER INC-2011117792

PATIENT
  Sex: Female

DRUGS (2)
  1. LYRICA [Suspect]
     Dosage: 50 MG, 1X/DAY
     Dates: start: 20110529
  2. LYRICA [Suspect]
     Indication: FIBROMYALGIA
     Dosage: 50 MG, 2X/DAY
     Route: 048
     Dates: start: 20110509, end: 20110528

REACTIONS (1)
  - OEDEMA PERIPHERAL [None]
